FAERS Safety Report 18815514 (Version 1)
Quarter: 2021Q1

REPORT INFORMATION
  Report Type: Spontaneous
  Country: US (occurrence: US)
  Receive Date: 20210131
  Receipt Date: 20210131
  Transmission Date: 20210419
  Serious: Yes (Other)
  Sender: FDA-Public Use
  Company Number: None

PATIENT
  Sex: Male
  Weight: 72.57 kg

DRUGS (6)
  1. PANTOPRAZOLE [Concomitant]
     Active Substance: PANTOPRAZOLE
  2. METHADONE [Concomitant]
     Active Substance: METHADONE HYDROCHLORIDE
  3. BD INTEGRA SYRINGE [Suspect]
     Active Substance: DEVICE
  4. TESTOSTERONE. [Suspect]
     Active Substance: TESTOSTERONE
  5. PERCOCET [Concomitant]
     Active Substance: ACETAMINOPHEN\OXYCODONE HYDROCHLORIDE
  6. HYZAAR [Concomitant]
     Active Substance: HYDROCHLOROTHIAZIDE\LOSARTAN POTASSIUM

REACTIONS (3)
  - Incorrect dose administered by device [None]
  - Drug delivery system malfunction [None]
  - Syringe issue [None]

NARRATIVE: CASE EVENT DATE: 20210131
